FAERS Safety Report 10158716 (Version 2)
Quarter: 2014Q2

REPORT INFORMATION
  Report Type: Spontaneous
  Country: US (occurrence: US)
  Receive Date: 20140508
  Receipt Date: 20140508
  Transmission Date: 20141212
  Serious: No
  Sender: FDA-Public Use
  Company Number: US-TEVA-408724USA

PATIENT
  Age: 29 Year
  Sex: Female

DRUGS (2)
  1. CLARAVIS [Suspect]
     Dates: start: 20130124, end: 20130211
  2. DOXYCYCLINE [Concomitant]
     Dosage: 200 MILLIGRAM DAILY;

REACTIONS (4)
  - Anxiety [Unknown]
  - Crying [Unknown]
  - Insomnia [Unknown]
  - Decreased appetite [Unknown]
